FAERS Safety Report 7358194-4 (Version None)
Quarter: 2011Q1

REPORT INFORMATION
  Report Type: 
  Country: None (occurrence: None)
  Receive Date: 20110314
  Receipt Date: 20110314
  Transmission Date: 20110831
  Serious: No
  Sender: FDA-Public Use
  Company Number: None

PATIENT
  Age: 57 Year
  Sex: Female

DRUGS (1)
  1. DICLOFENAC SODIUM [Suspect]
     Indication: POSTOPERATIVE CARE
     Dosage: 1 DROP 4X A DAY INTO EYE
     Dates: start: 20110223, end: 20110302

REACTIONS (4)
  - KERATITIS [None]
  - BLINDNESS [None]
  - EYE IRRITATION [None]
  - INSTILLATION SITE PAIN [None]
